FAERS Safety Report 9030662 (Version 1)
Quarter: 2013Q1

REPORT INFORMATION
  Report Type: Spontaneous
  Country: GR (occurrence: GR)
  Receive Date: 20130123
  Receipt Date: 20130123
  Transmission Date: 20140127
  Serious: Yes (Death)
  Sender: FDA-Public Use
  Company Number: GR-ASTRAZENECA-2013SE04488

PATIENT
  Age: 34 Year
  Sex: Male

DRUGS (7)
  1. BRILIQUE [Suspect]
     Indication: ACUTE CORONARY SYNDROME
     Route: 048
     Dates: start: 20121221, end: 20121221
  2. BRILIQUE [Suspect]
     Indication: ACUTE CORONARY SYNDROME
     Route: 048
     Dates: start: 20121222
  3. NGIOTENSIN CONVERTING ENZYME INHIBITOR [Concomitant]
     Route: 048
  4. LASIX [Concomitant]
     Route: 048
  5. STATIN [Concomitant]
     Route: 048
  6. BETA-BLOCKER [Concomitant]
     Route: 048
  7. ASA [Concomitant]

REACTIONS (1)
  - Cerebrovascular accident [Fatal]
